FAERS Safety Report 22092734 (Version 1)
Quarter: 2023Q1

REPORT INFORMATION
  Report Type: Spontaneous
  Country: US (occurrence: None)
  Receive Date: 20230313
  Receipt Date: 20230313
  Transmission Date: 20230418
  Serious: Yes (Other)
  Sender: FDA-Public Use
  Company Number: None

PATIENT
  Age: 65 Year
  Sex: Female
  Weight: 49.5 kg

DRUGS (7)
  1. ALBUTEROL SULFATE [Suspect]
     Active Substance: ALBUTEROL SULFATE
     Indication: Chronic obstructive pulmonary disease
     Dosage: OTHER STRENGTH : MCG PER ACTUATION;?OTHER QUANTITY : 200 INHALATION(S);?FREQUENCY : EVERY 6 HOURS;?
     Route: 055
  2. ALBUTEROL SULFATE [Concomitant]
     Active Substance: ALBUTEROL SULFATE
  3. STIOLTO RESPIMAT [Concomitant]
     Active Substance: OLODATEROL HYDROCHLORIDE\TIOTROPIUM BROMIDE MONOHYDRATE
  4. VALSARTAN [Concomitant]
     Active Substance: VALSARTAN
  5. PRIMATENE MIST [Concomitant]
     Active Substance: EPINEPHRINE
  6. BUPROPION HYDROCHLORIDE [Concomitant]
     Active Substance: BUPROPION HYDROCHLORIDE
  7. OXYGEN CONCENTRATOR E1390 [Concomitant]

REACTIONS (4)
  - Incorrect dose administered by device [None]
  - Loss of personal independence in daily activities [None]
  - Product quality issue [None]
  - Therapeutic product effect decreased [None]

NARRATIVE: CASE EVENT DATE: 20221029
